FAERS Safety Report 6902818-X (Version None)
Quarter: 2010Q3

REPORT INFORMATION
  Report Type: 
  Country: None (occurrence: None)
  Receive Date: 20100803
  Receipt Date: 20080823
  Transmission Date: 20110219
  Serious: Yes (Other)
  Sender: FDA-Public Use
  Company Number: US-PFIZER INC-2008070481

PATIENT
  Age: 80 Year
  Sex: Male
  Weight: 56.7 kg

DRUGS (1)
  1. LYRICA [Suspect]
     Indication: EPILEPSY
     Dates: start: 20080701

REACTIONS (2)
  - CONTUSION [None]
  - CONVULSION [None]
